FAERS Safety Report 4287941-3 (Version None)
Quarter: 2004Q1

REPORT INFORMATION
  Report Type: 
  Country: None (occurrence: None)
  Receive Date: 20040209
  Receipt Date: 20031103
  Transmission Date: 20041129
  Serious: No
  Sender: FDA-Public Use
  Company Number: US-GLAXOSMITHKLINE-A0432623A

PATIENT
  Age: 73 Year
  Sex: Female

DRUGS (9)
  1. PAXIL [Suspect]
     Indication: DEPRESSION
     Dosage: 25MG PER DAY
     Route: 048
     Dates: start: 20031001
  2. FOSAMAX [Concomitant]
  3. CALTRATE [Concomitant]
  4. ATENOLOL [Concomitant]
  5. COZAAR [Concomitant]
  6. HYDROCHLOROTHIAZIDE [Concomitant]
  7. ASPIRIN [Concomitant]
  8. FOLTX [Concomitant]
  9. TRICOR [Concomitant]

REACTIONS (3)
  - FEELING JITTERY [None]
  - HEADACHE [None]
  - NAUSEA [None]
